FAERS Safety Report 24372319 (Version 5)
Quarter: 2024Q4

REPORT INFORMATION
  Report Type: Report from Study
  Country: US (occurrence: US)
  Receive Date: 20240927
  Receipt Date: 20241202
  Transmission Date: 20250115
  Serious: Yes (Death, Life-Threatening, Hospitalization, Other)
  Sender: BAXTER
  Company Number: US-BAXTER-2024BAX024763

PATIENT
  Age: 71 Year
  Sex: Male
  Weight: 77 kg

DRUGS (27)
  1. CYCLOPHOSPHAMIDE [Suspect]
     Active Substance: CYCLOPHOSPHAMIDE
     Indication: Diffuse large B-cell lymphoma stage IV
     Dosage: 1100 MG, EVERY 3 WEEKS
     Route: 042
     Dates: start: 20240716, end: 20241101
  2. DOXORUBICIN [Suspect]
     Active Substance: DOXORUBICIN
     Indication: Diffuse large B-cell lymphoma stage IV
     Dosage: 75 MG, EVERY 3 WEEKS
     Route: 042
     Dates: start: 20240716, end: 20241101
  3. PREDNISONE [Suspect]
     Active Substance: PREDNISONE
     Indication: Diffuse large B-cell lymphoma stage IV
     Dosage: 100 MG DAILY C1-6, DAY 1-5, EVERY 1 DAYS
     Route: 048
     Dates: start: 20240716, end: 20241105
  4. EPCORITAMAB [Suspect]
     Active Substance: EPCORITAMAB
     Indication: Diffuse large B-cell lymphoma stage IV
     Dosage: 48 MG C1 (STEP-UP), CYCLES 2 - 4 (21-DAY CYCLE, WEEKLY DOSE), C5 - 8 (21-DAY CYCLE, EVERY 3 WEEKS) P
     Route: 058
     Dates: start: 20240716, end: 20240918
  5. EPCORITAMAB [Suspect]
     Active Substance: EPCORITAMAB
     Dosage: 48 MG C1 (STEP-UP), CYCLES 2 - 4 (21-DAY CYCLE, WEEKLY DOSE), C5 - 8 (21-DAY CYCLE, EVERY 3 WEEKS) P
     Route: 058
     Dates: start: 20241002, end: 20241009
  6. RITUXIMAB [Suspect]
     Active Substance: RITUXIMAB
     Indication: Diffuse large B-cell lymphoma stage IV
     Dosage: 760 MG, EVERY 3 WEEKS
     Route: 042
     Dates: start: 20240716, end: 20241009
  7. VINCRISTINE [Suspect]
     Active Substance: VINCRISTINE
     Indication: Diffuse large B-cell lymphoma stage IV
     Dosage: 2 MG, EVERY 3 WEEKS
     Route: 042
     Dates: start: 20240716, end: 20241101
  8. ATORVASTATIN [Concomitant]
     Active Substance: ATORVASTATIN
     Indication: Hyperlipidaemia
     Dosage: 40 MG, EVERY 1 DAYS, START DATE: APR 2021
     Route: 065
  9. LEVOTHYROXINE [Concomitant]
     Active Substance: LEVOTHYROXINE
     Indication: Hypothyroidism
     Dosage: 125 10X6/G, EVERY 1 DAYS, START DATE: APR 2024
     Route: 065
  10. METOPROLOL TARTRATE [Concomitant]
     Active Substance: METOPROLOL TARTRATE
     Indication: Hypertension
     Dosage: 25 MG, 2/DAYS, START DATE: MAY 2024
     Route: 065
  11. TAMSULOSIN [Concomitant]
     Active Substance: TAMSULOSIN
     Indication: Benign prostatic hyperplasia
     Dosage: 0.4 MG, EVERY 1 DAYS
     Route: 065
     Dates: start: 20240901
  12. TRAMADOL [Concomitant]
     Active Substance: TRAMADOL
     Indication: Back pain
     Dosage: 50 G, AS NECESSARY
     Route: 065
     Dates: start: 20240725
  13. ACETAMINOPHEN [Concomitant]
     Active Substance: ACETAMINOPHEN
     Indication: Prophylaxis
     Dosage: 650 MG, EVERY 1 WEEKS
     Route: 065
     Dates: start: 20240716
  14. ACYCLOVIR [Concomitant]
     Active Substance: ACYCLOVIR
     Indication: Antiviral prophylaxis
     Dosage: 400 MG, EVERY 8 HOURS
     Route: 065
     Dates: start: 20240716
  15. SULFAMETHOXAZOLE\TRIMETHOPRIM [Concomitant]
     Active Substance: SULFAMETHOXAZOLE\TRIMETHOPRIM
     Indication: Antifungal prophylaxis
     Dosage: 1 DOSAGE FORM, 800-160 MG, EVERY 24 HOURS
     Route: 065
     Dates: start: 20240716
  16. AKYNZEO [Concomitant]
     Indication: Prophylaxis of nausea and vomiting
     Dosage: 0.25 MG, EVERY 3 WEEKS
     Route: 065
     Dates: start: 20240716
  17. ROLVEDON [Concomitant]
     Active Substance: EFLAPEGRASTIM-XNST
     Indication: Prophylaxis
     Dosage: 13.2 MG, EVERY 3 YEARS
     Route: 065
     Dates: start: 20240717
  18. DIPHENHYDRAMINE [Concomitant]
     Active Substance: DIPHENHYDRAMINE
     Indication: Urticaria
     Dosage: 25 MG, TOTAL
     Route: 065
     Dates: start: 20240821, end: 20240821
  19. DIPHENHYDRAMINE [Concomitant]
     Active Substance: DIPHENHYDRAMINE
     Indication: Prophylaxis
     Dosage: 25 MG, AS NECESSARY
     Route: 065
     Dates: start: 20240826
  20. CETIRIZINE [Concomitant]
     Active Substance: CETIRIZINE HYDROCHLORIDE
     Indication: Urticaria
     Dosage: 10 MG, EVERY 1 DAYS
     Route: 065
     Dates: start: 20240826
  21. CEFEPIME [Concomitant]
     Active Substance: CEFEPIME HYDROCHLORIDE
     Indication: Infection prophylaxis
     Dosage: 2/100 BAG, EVERY 8 HOURS
     Route: 065
     Dates: start: 20240814, end: 20240815
  22. AUGMENTIN [Concomitant]
     Active Substance: AMOXICILLIN\CLAVULANATE POTASSIUM
     Indication: Bronchitis
     Dosage: 1 DOSAGE FORM 875/125 MG, 2/DAYS
     Route: 065
     Dates: start: 20240918
  23. DIPHENHYDRAMINE [Concomitant]
     Active Substance: DIPHENHYDRAMINE
     Indication: Prophylaxis
     Dosage: 50 MG, EVERY 1 WEEKS
     Route: 065
     Dates: start: 20240716
  24. MONTELUKAST [Concomitant]
     Active Substance: MONTELUKAST
     Indication: Sarcoidosis
     Dosage: 10 MG, EVERY 1 DAYS, START DATE: MAY-2024
     Route: 065
  25. VALGANCICLOVIR [Concomitant]
     Active Substance: VALGANCICLOVIR
     Indication: Cytomegalovirus infection reactivation
     Dosage: 900 MG, EVERY 12 HOURS
     Route: 065
     Dates: start: 20241109
  26. Heprin [Concomitant]
     Indication: Thrombosis prophylaxis
     Dosage: 5000 U/ML, EVERY 8 HOURS
     Route: 065
     Dates: start: 20241113
  27. GANCICLOVIR [Concomitant]
     Active Substance: GANCICLOVIR
     Indication: Cytomegalovirus infection reactivation
     Dosage: 500 MG, EVERY 12 HOURS
     Route: 065
     Dates: start: 20241113

REACTIONS (6)
  - Abdominal distension [Recovered/Resolved]
  - Septic shock [Fatal]
  - Septic shock [Recovered/Resolved]
  - Asthenia [Recovered/Resolved]
  - Abdominal pain [Recovered/Resolved]
  - Diarrhoea [Recovered/Resolved]

NARRATIVE: CASE EVENT DATE: 20240906
